FAERS Safety Report 25089875 (Version 1)
Quarter: 2025Q1

REPORT INFORMATION
  Report Type: Spontaneous
  Country: US (occurrence: None)
  Receive Date: 20250317
  Receipt Date: 20250317
  Transmission Date: 20250408
  Serious: Yes (Disabling)
  Sender: FDA-CTU
  Company Number: None

PATIENT
  Age: 73 Year
  Sex: Female
  Weight: 57.6 kg

DRUGS (1)
  1. MUPIROCIN [Suspect]
     Active Substance: MUPIROCIN
     Indication: Postoperative care
     Dosage: OTHER QUANTITY : 22 SPREAD CREAM;?FREQUENCY : DAILY;?
     Route: 061
     Dates: start: 20250227, end: 20250303

REACTIONS (5)
  - Abdominal pain upper [None]
  - Nausea [None]
  - Headache [None]
  - Therapy change [None]
  - Therapy cessation [None]

NARRATIVE: CASE EVENT DATE: 20250227
